FAERS Safety Report 4977495-8 (Version None)
Quarter: 2006Q2

REPORT INFORMATION
  Report Type: 
  Country: None (occurrence: None)
  Receive Date: 20060420
  Receipt Date: 20060410
  Transmission Date: 20061013
  Serious: Yes (Death, Life-Threatening, Hospitalization)
  Sender: FDA-Public Use
  Company Number: JP-JNJFOC-20051203774

PATIENT
  Sex: Female
  Weight: 65 kg

DRUGS (10)
  1. REMICADE [Suspect]
     Route: 042
  2. REMICADE [Suspect]
     Route: 042
  3. REMICADE [Suspect]
     Indication: RHEUMATOID ARTHRITIS
     Route: 042
  4. METOLATE [Suspect]
     Indication: RHEUMATOID ARTHRITIS
     Route: 048
  5. ISCOTIN [Concomitant]
     Route: 048
  6. LORCAM [Concomitant]
     Route: 048
  7. MUCOSTA [Concomitant]
     Route: 048
  8. TAKEPRON [Concomitant]
     Route: 048
  9. BLOPRESS [Concomitant]
     Route: 048
  10. BEZATOL SR [Concomitant]
     Route: 048

REACTIONS (8)
  - BLOOD PRESSURE DECREASED [None]
  - CARDIAC ARREST [None]
  - CYTOMEGALOVIRUS INFECTION [None]
  - DISSEMINATED INTRAVASCULAR COAGULATION [None]
  - MULTI-ORGAN FAILURE [None]
  - PNEUMOCYSTIS JIROVECI PNEUMONIA [None]
  - RENAL IMPAIRMENT [None]
  - RESPIRATORY FAILURE [None]
